FAERS Safety Report 19444586 (Version 1)
Quarter: 2021Q2

REPORT INFORMATION
  Report Type: Report from Study
  Country: IT (occurrence: IT)
  Receive Date: 20210621
  Receipt Date: 20210621
  Transmission Date: 20210717
  Serious: Yes (Death, Life-Threatening, Hospitalization, Other)
  Sender: FDA-Public Use
  Company Number: IT-CELLTRION INC.-2021IT008319

PATIENT

DRUGS (6)
  1. IMBRUVICA [Suspect]
     Active Substance: IBRUTINIB
     Dosage: 560 MG, QD (COMPASSIONATE USE)
     Route: 048
     Dates: start: 20201230, end: 20210111
  2. IMBRUVICA [Suspect]
     Active Substance: IBRUTINIB
     Indication: CENTRAL NERVOUS SYSTEM LYMPHOMA
     Dosage: 560 MG, QD
     Route: 048
     Dates: start: 20201209
  3. IMBRUVICA [Suspect]
     Active Substance: IBRUTINIB
     Dosage: 560 MG, QD (COMPASSIONATE USE)
     Route: 048
     Dates: start: 20201230, end: 20210111
  4. RITUXIMAB (UNKNOWN) [Suspect]
     Active Substance: RITUXIMAB
     Indication: CENTRAL NERVOUS SYSTEM LYMPHOMA
     Dosage: R?MINI CHOP PLUS IBRUTINIB 560 MG/D
  5. IMBRUVICA [Suspect]
     Active Substance: IBRUTINIB
     Indication: CENTRAL NERVOUS SYSTEM LYMPHOMA
     Dosage: 560 MG, QD
     Route: 048
     Dates: start: 20201209
  6. CHOP [Suspect]
     Active Substance: CYCLOPHOSPHAMIDE\DOXORUBICIN\PREDNISONE\VINCRISTINE
     Indication: CENTRAL NERVOUS SYSTEM LYMPHOMA
     Dosage: R?MINI CHOP PLUS IBRUTINIB 560 MG/D

REACTIONS (11)
  - Off label use [Fatal]
  - Pneumonia [Fatal]
  - Infection [Fatal]
  - Central nervous system lymphoma [Fatal]
  - SARS-CoV-2 test positive [Fatal]
  - Thrombocytopenia [Fatal]
  - Cytomegalovirus infection reactivation [Fatal]
  - Aspergillus infection [Fatal]
  - Disease progression [Fatal]
  - Neutropenia [Fatal]
  - Product use in unapproved indication [Fatal]

NARRATIVE: CASE EVENT DATE: 20210111
